FAERS Safety Report 11736695 (Version 1)
Quarter: 2015Q4

REPORT INFORMATION
  Report Type: Spontaneous
  Country: US (occurrence: None)
  Receive Date: 20151112
  Receipt Date: 20151112
  Transmission Date: 20160304
  Serious: Yes (Life-Threatening, Hospitalization, Disabling)
  Sender: FDA-Public Use
  Company Number: None

PATIENT
  Age: 48 Year
  Sex: Female
  Weight: 52.16 kg

DRUGS (7)
  1. AMLODIPINE [Concomitant]
     Active Substance: AMLODIPINE BESYLATE
  2. MULTIPLE SUPPLEMENTS [Concomitant]
  3. BYSTOLIC [Concomitant]
     Active Substance: NEBIVOLOL HYDROCHLORIDE
  4. LIOTHYRONINE [Concomitant]
     Active Substance: LIOTHYRONINE
  5. LEVOXYL [Concomitant]
     Active Substance: LEVOTHYROXINE SODIUM
  6. LEVAQUIN [Suspect]
     Active Substance: LEVOFLOXACIN
     Indication: SINUSITIS
     Dosage: 1 PILL
     Route: 048
  7. CYMBALTA [Concomitant]
     Active Substance: DULOXETINE HYDROCHLORIDE

REACTIONS (41)
  - Arthralgia [None]
  - Night blindness [None]
  - Feeding disorder [None]
  - Liver injury [None]
  - Drug dependence [None]
  - Dry skin [None]
  - Vasculitis [None]
  - Pain [None]
  - Paraesthesia [None]
  - Abdominal pain [None]
  - Sinusitis [None]
  - Blood potassium decreased [None]
  - Alopecia [None]
  - Mood swings [None]
  - Disturbance in attention [None]
  - Body temperature decreased [None]
  - Insomnia [None]
  - Skin atrophy [None]
  - Nail ridging [None]
  - Migraine [None]
  - Hypertension [None]
  - Suicidal ideation [None]
  - Burning sensation [None]
  - Weight decreased [None]
  - Infection susceptibility increased [None]
  - Pain in extremity [None]
  - Anxiety [None]
  - Visual impairment [None]
  - Aphasia [None]
  - Saliva altered [None]
  - Blood cortisol increased [None]
  - Autoimmune disorder [None]
  - Ovarian disorder [None]
  - Fatigue [None]
  - Tremor [None]
  - Impaired work ability [None]
  - Memory impairment [None]
  - Amenorrhoea [None]
  - Thyroid disorder [None]
  - Hypoaesthesia [None]
  - Contraindication to medical treatment [None]
